FAERS Safety Report 25009681 (Version 1)
Quarter: 2025Q1

REPORT INFORMATION
  Report Type: Spontaneous
  Country: US (occurrence: None)
  Receive Date: 20250225
  Receipt Date: 20250225
  Transmission Date: 20250408
  Serious: Yes (Life-Threatening, Hospitalization, Other)
  Sender: FDA-CTU
  Company Number: None

PATIENT
  Age: 65 Year
  Sex: Female
  Weight: 92 kg

DRUGS (6)
  1. CEFEPIME [Suspect]
     Active Substance: CEFEPIME HYDROCHLORIDE
     Indication: Pneumonia
     Dosage: FREQUENCY : 3 TIMES A DAY;?
     Route: 042
     Dates: start: 20250210, end: 20250213
  2. PROPOFOL [Concomitant]
     Active Substance: PROPOFOL
     Dates: start: 20250210, end: 20250216
  3. PANTOPRAZOLE SODIUM [Concomitant]
     Active Substance: PANTOPRAZOLE SODIUM
     Dates: start: 20250210, end: 20250220
  4. HYDROCORTISONE [Concomitant]
     Active Substance: HYDROCORTISONE
     Dates: start: 20250210, end: 20250213
  5. OXYCODONE [Concomitant]
     Active Substance: OXYCODONE
     Dates: start: 20250210, end: 20250214
  6. VANCOMYCIN [Concomitant]
     Active Substance: VANCOMYCIN
     Dates: start: 20250211, end: 20250211

REACTIONS (3)
  - Electroencephalogram abnormal [None]
  - Adrenal insufficiency [None]
  - Neurotoxicity [None]

NARRATIVE: CASE EVENT DATE: 20250213
